FAERS Safety Report 19257874 (Version 1)
Quarter: 2021Q2

REPORT INFORMATION
  Report Type: Spontaneous
  Country: US (occurrence: US)
  Receive Date: 20210514
  Receipt Date: 20210514
  Transmission Date: 20210717
  Serious: No
  Sender: FDA-Public Use
  Company Number: None

PATIENT
  Age: 51 Year
  Sex: Male
  Weight: 106.59 kg

DRUGS (1)
  1. NEOMYCIN/ POLYMYXIN B (NEOMYCIN S04 3.5MG/POLYMYMIX B SO4 1000UNT/GM [Suspect]
     Active Substance: NEOMYCIN\POLYMYXIN B
     Indication: ANTIBIOTIC PROPHYLAXIS
     Route: 061
     Dates: start: 20201213

REACTIONS (2)
  - Erythema multiforme [None]
  - Eczema [None]

NARRATIVE: CASE EVENT DATE: 20201213
